FAERS Safety Report 9226387 (Version 1)
Quarter: 2013Q2

REPORT INFORMATION
  Report Type: Spontaneous
  Country: US (occurrence: US)
  Receive Date: 20130411
  Receipt Date: 20130411
  Transmission Date: 20140414
  Serious: No
  Sender: FDA-Public Use
  Company Number: US-009507513-1304USA002796

PATIENT
  Age: 29 Year
  Sex: Female
  Weight: 54.42 kg

DRUGS (1)
  1. NUVARING [Suspect]
     Indication: CONTRACEPTION
     Dosage: 1 RING, CONTINUOUSLY FOR 3 WEEKS , FOLLOWED BY 1 RING FREE WEEK, THEN THIS CYCLE REPEATED
     Route: 067
     Dates: start: 201211

REACTIONS (1)
  - Unintended pregnancy [Unknown]
